FAERS Safety Report 25330921 (Version 1)
Quarter: 2025Q2

REPORT INFORMATION
  Report Type: Spontaneous
  Country: US (occurrence: None)
  Receive Date: 20250516
  Receipt Date: 20250516
  Transmission Date: 20250717
  Serious: Yes (Disabling)
  Sender: FDA-CTU
  Company Number: None

PATIENT
  Age: 60 Year
  Sex: Female
  Weight: 52.2 kg

DRUGS (15)
  1. VALACYCLOVIR [Suspect]
     Active Substance: VALACYCLOVIR HYDROCHLORIDE
     Indication: Herpes zoster
     Dosage: 1 TABLET(S) TWICE  DAY ORAL
     Route: 048
     Dates: start: 20250428, end: 20250503
  2. Predisone steroid eye drops [Concomitant]
  3. magnesium threonite [Concomitant]
  4. CARNITINE [Concomitant]
     Active Substance: CARNITINE
  5. ALPHA LIPOIC ACID [Concomitant]
     Active Substance: .ALPHA.-LIPOIC ACID
  6. LYSINE [Concomitant]
     Active Substance: LYSINE
  7. lemon balm (tincture) [Concomitant]
  8. NAC [Concomitant]
  9. Japanese knotweed (tincture) [Concomitant]
  10. cryptoleptis (tincture) [Concomitant]
  11. VITAMIN C [Concomitant]
     Active Substance: ASCORBIC ACID
  12. b-complex with the C [Concomitant]
  13. VITAMIN D3 [Concomitant]
     Active Substance: CHOLECALCIFEROL
  14. JWH-018 [Concomitant]
     Active Substance: JWH-018
  15. ZINC [Concomitant]
     Active Substance: ZINC

REACTIONS (12)
  - Headache [None]
  - Tremor [None]
  - Asthenia [None]
  - Sensory disturbance [None]
  - Nightmare [None]
  - Insomnia [None]
  - Sleep disorder [None]
  - Irritability [None]
  - Mood altered [None]
  - Depression [None]
  - Nausea [None]
  - Diarrhoea [None]
